FAERS Safety Report 25660159 (Version 1)
Quarter: 2025Q3

REPORT INFORMATION
  Report Type: Spontaneous
  Country: GB (occurrence: GB)
  Receive Date: 20250808
  Receipt Date: 20250808
  Transmission Date: 20251020
  Serious: Yes (Other)
  Sender: MYLAN
  Company Number: GB-MHRA-EMIS-143015-099a6bac-352b-4586-abf4-073c760aabc9

PATIENT
  Age: 46 Year
  Sex: Female
  Weight: 65 kg

DRUGS (8)
  1. APIXABAN [Suspect]
     Active Substance: APIXABAN
     Indication: Product used for unknown indication
     Dosage: 1 DOSAGE FORM, BID (12 HOURS)
     Dates: start: 20250214
  2. APIXABAN [Suspect]
     Active Substance: APIXABAN
     Dosage: 1 DOSAGE FORM, BID (12 HOURS)
     Route: 048
     Dates: start: 20250214
  3. APIXABAN [Suspect]
     Active Substance: APIXABAN
     Dosage: 1 DOSAGE FORM, BID (12 HOURS)
     Route: 048
     Dates: start: 20250214
  4. APIXABAN [Suspect]
     Active Substance: APIXABAN
     Dosage: 1 DOSAGE FORM, BID (12 HOURS)
     Dates: start: 20250214
  5. DABIGATRAN ETEXILATE [Suspect]
     Active Substance: DABIGATRAN ETEXILATE
     Dosage: 150 MILLIGRAM, BID (12 HOURS, SWITCHED TO APIXABAN)
  6. DABIGATRAN ETEXILATE [Suspect]
     Active Substance: DABIGATRAN ETEXILATE
     Dosage: 150 MILLIGRAM, BID (12 HOURS, SWITCHED TO APIXABAN)
     Route: 048
  7. DABIGATRAN ETEXILATE [Suspect]
     Active Substance: DABIGATRAN ETEXILATE
     Dosage: 150 MILLIGRAM, BID (12 HOURS, SWITCHED TO APIXABAN)
     Route: 048
  8. DABIGATRAN ETEXILATE [Suspect]
     Active Substance: DABIGATRAN ETEXILATE
     Dosage: 150 MILLIGRAM, BID (12 HOURS, SWITCHED TO APIXABAN)

REACTIONS (6)
  - Joint swelling [Unknown]
  - Diplopia [Unknown]
  - Myalgia [Unknown]
  - Gastrooesophageal reflux disease [Unknown]
  - Oedema peripheral [Unknown]
  - Fatigue [Unknown]
